FAERS Safety Report 4377737-6 (Version None)
Quarter: 2004Q2

REPORT INFORMATION
  Report Type: 
  Country: None (occurrence: None)
  Receive Date: 20040615
  Receipt Date: 20040604
  Transmission Date: 20050107
  Serious: Yes (Other)
  Sender: FDA-Public Use
  Company Number: PHEH2004US06161

PATIENT
  Age: 71 Year
  Sex: Female

DRUGS (5)
  1. DIOVAN HCT [Suspect]
     Indication: HYPERTENSION
     Dosage: 1 DF, QD
     Route: 048
     Dates: start: 20030101
  2. SYNTHROID [Concomitant]
  3. PROTONIX [Concomitant]
     Indication: GASTROOESOPHAGEAL REFLUX DISEASE
  4. PAXIL [Concomitant]
     Indication: DEPRESSION
  5. BEXTRA [Concomitant]
     Indication: ARTHRITIS

REACTIONS (3)
  - DIZZINESS [None]
  - HEADACHE [None]
  - HEART RATE DECREASED [None]
